FAERS Safety Report 6903646-1 (Version None)
Quarter: 2010Q3

REPORT INFORMATION
  Report Type: 
  Country: None (occurrence: None)
  Receive Date: 20100803
  Receipt Date: 20081104
  Transmission Date: 20110219
  Serious: No
  Sender: FDA-Public Use
  Company Number: US-PFIZER INC-2008093153

PATIENT
  Sex: Female

DRUGS (1)
  1. LYRICA [Suspect]
     Indication: BONE PAIN
     Dates: start: 20080101, end: 20081030

REACTIONS (3)
  - LEUKOPENIA [None]
  - MYALGIA [None]
  - NEUROPATHY PERIPHERAL [None]
